FAERS Safety Report 12405983 (Version 3)
Quarter: 2016Q2

REPORT INFORMATION
  Report Type: Report from Study
  Country: JP (occurrence: JP)
  Receive Date: 20160526
  Receipt Date: 20160622
  Transmission Date: 20160815
  Serious: Yes (Hospitalization)
  Sender: FDA-Public Use
  Company Number: JP-ROCHE-1762232

PATIENT
  Age: 73 Year
  Sex: Female
  Weight: 35.3 kg

DRUGS (31)
  1. ALPRAZOLAM. [Concomitant]
     Active Substance: ALPRAZOLAM
     Indication: INSOMNIA
  2. EPINASTINE HYDROCHLORIDE. [Concomitant]
     Active Substance: EPINASTINE HYDROCHLORIDE
     Indication: DRUG ERUPTION
     Route: 048
     Dates: start: 20160521, end: 20160525
  3. POTASSIUM CHLORIDE. [Concomitant]
     Active Substance: POTASSIUM CHLORIDE
     Indication: HYPOKALAEMIA
     Route: 065
     Dates: start: 20160601, end: 20160604
  4. ATEZOLIZUMAB [Suspect]
     Active Substance: ATEZOLIZUMAB
     Indication: NON-SMALL CELL LUNG CANCER
     Dosage: DATE OF MOST RECENT DOSE: 16/MAY/2016
     Route: 042
     Dates: start: 20160216
  5. CARBOPLATIN. [Suspect]
     Active Substance: CARBOPLATIN
     Indication: NON-SMALL CELL LUNG CANCER
     Dosage: AUC6/ MOST RECENT DOSE: 16/MAY/2016 AT 390 MG
     Route: 042
     Dates: start: 20160216
  6. PACLITAXEL. [Suspect]
     Active Substance: PACLITAXEL
     Indication: NON-SMALL CELL LUNG CANCER
     Dosage: MOST RECENT DOSE: 16/MAY/2016 AT 200 MG
     Route: 042
     Dates: start: 20160216
  7. ESOMEPRAZOLE MAGNESIUM. [Concomitant]
     Active Substance: ESOMEPRAZOLE MAGNESIUM
     Indication: GASTROOESOPHAGEAL REFLUX DISEASE
     Route: 065
     Dates: start: 20151110
  8. LOXOPROFEN SODIUM HYDRATE [Concomitant]
     Active Substance: LOXOPROFEN SODIUM DIHYDRATE
     Indication: ARTHRALGIA
     Route: 065
     Dates: start: 20160313
  9. SODIUM CHLORIDE. [Concomitant]
     Active Substance: SODIUM CHLORIDE
     Route: 065
     Dates: start: 20160530, end: 20160601
  10. FAMOTIDINE. [Concomitant]
     Active Substance: FAMOTIDINE
     Indication: HYPERSENSITIVITY
     Route: 065
     Dates: start: 20160516, end: 20160516
  11. METOCLOPRAMIDE. [Concomitant]
     Active Substance: METOCLOPRAMIDE
     Indication: NAUSEA
     Route: 065
     Dates: start: 20160529, end: 20160604
  12. GLYCERINE [Concomitant]
     Active Substance: GLYCERIN
     Indication: CONSTIPATION
     Route: 065
     Dates: start: 20160603, end: 20160603
  13. CANDESARTAN CILEXETIL. [Concomitant]
     Active Substance: CANDESARTAN CILEXETIL
     Indication: HYPERTENSION
  14. SODIUM CHLORIDE. [Concomitant]
     Active Substance: SODIUM CHLORIDE
     Indication: HYPONATRAEMIA
     Route: 065
     Dates: start: 20160325, end: 20160530
  15. AMLODIPINE BESILATE [Concomitant]
     Active Substance: AMLODIPINE BESYLATE
     Indication: HYPERTENSION
     Route: 065
     Dates: start: 20160523
  16. MAGNESIUM OXIDE. [Concomitant]
     Active Substance: MAGNESIUM OXIDE
     Indication: CONSTIPATION
     Route: 065
     Dates: start: 20140514
  17. POTASSIUM GLUCONATE [Concomitant]
     Active Substance: POTASSIUM GLUCONATE
     Indication: HYPOKALAEMIA
     Route: 065
     Dates: start: 20160406, end: 20160601
  18. PALONOSETRON HYDROCHLORIDE. [Concomitant]
     Active Substance: PALONOSETRON HYDROCHLORIDE
     Indication: NAUSEA
     Route: 065
     Dates: start: 20160516, end: 20160516
  19. CHLORPHENIRAMINE MALEATE. [Concomitant]
     Active Substance: CHLORPHENIRAMINE MALEATE
     Indication: HYPERSENSITIVITY
     Route: 065
     Dates: start: 20160516, end: 20160516
  20. DIPHENHYDRAMINE. [Concomitant]
     Active Substance: DIPHENHYDRAMINE
     Indication: PRURITUS
     Route: 065
     Dates: start: 20160523, end: 20160601
  21. NAPROXEN. [Concomitant]
     Active Substance: NAPROXEN
     Indication: TUMOUR ASSOCIATED FEVER
     Route: 065
     Dates: start: 20160201
  22. DEQUALINIUM CHLORIDE [Concomitant]
     Active Substance: DEQUALINIUM CHLORIDE
     Indication: UPPER RESPIRATORY TRACT INFECTION
     Route: 065
     Dates: start: 20160509, end: 20160516
  23. DULOXETINE HYDROCHLORIDE. [Concomitant]
     Active Substance: DULOXETINE HYDROCHLORIDE
     Indication: NEUROPATHY PERIPHERAL
     Route: 065
     Dates: start: 20160526, end: 20160530
  24. CODEINE PHOSPHATE [Concomitant]
     Active Substance: CODEINE PHOSPHATE
     Indication: COUGH
     Route: 065
     Dates: start: 20150907
  25. BETAMETHASONE BUTYRATE PROPIONATE [Concomitant]
     Active Substance: BETAMETHASONE BUTYRATE PROPIONATE
     Indication: DRUG ERUPTION
     Route: 065
     Dates: start: 20160522
  26. LOXOPROFEN SODIUM HYDRATE [Concomitant]
     Active Substance: LOXOPROFEN SODIUM DIHYDRATE
     Indication: NEUROPATHY PERIPHERAL
  27. SODIUM CHLORIDE. [Concomitant]
     Active Substance: SODIUM CHLORIDE
     Route: 065
     Dates: start: 20160531, end: 20160604
  28. SODIUM CHLORIDE. [Concomitant]
     Active Substance: SODIUM CHLORIDE
     Route: 065
     Dates: start: 20160601, end: 20160604
  29. DIPHENHYDRAMINE. [Concomitant]
     Active Substance: DIPHENHYDRAMINE
     Indication: RASH
  30. HYDROXYZINE PAMOATE. [Concomitant]
     Active Substance: HYDROXYZINE PAMOATE
     Indication: DRUG ERUPTION
     Route: 048
     Dates: start: 20160522, end: 20160601
  31. LOPERAMIDE HYDROCHLORIDE. [Concomitant]
     Active Substance: LOPERAMIDE HYDROCHLORIDE
     Indication: DIARRHOEA
     Route: 065
     Dates: start: 20160523, end: 20160527

REACTIONS (1)
  - Pneumonia [Recovered/Resolved]

NARRATIVE: CASE EVENT DATE: 20160519
